FAERS Safety Report 16937290 (Version 2)
Quarter: 2020Q1

REPORT INFORMATION
  Report Type: Spontaneous
  Country: GB (occurrence: GB)
  Receive Date: 20191018
  Receipt Date: 20200131
  Transmission Date: 20200409
  Serious: Yes (Hospitalization)
  Sender: FDA-Public Use
  Company Number: GB-MYLANLABS-2019M1098426

PATIENT
  Age: 49 Year
  Sex: Male
  Weight: 75 kg

DRUGS (14)
  1. OMEPRAZOLE. [Concomitant]
     Active Substance: OMEPRAZOLE
     Indication: PRODUCT USED FOR UNKNOWN INDICATION
     Dosage: 2 DOSAGE FORM, QD (2 DF, QD)
     Route: 065
     Dates: start: 20190812, end: 20190813
  2. CARBAMAZEPINE. [Concomitant]
     Active Substance: CARBAMAZEPINE
     Indication: PRODUCT USED FOR UNKNOWN INDICATION
     Dosage: 3 DOSAGE FORM, QD (3 DF, QD)
     Route: 065
     Dates: start: 20190812, end: 20190813
  3. FERROUS FUMARATE [Concomitant]
     Active Substance: FERROUS FUMARATE
     Indication: PRODUCT USED FOR UNKNOWN INDICATION
     Dosage: 2 DOSAGE FORM, QD
     Route: 065
     Dates: start: 20190812, end: 20190813
  4. PRIADEL                            /00033702/ [Concomitant]
     Active Substance: LITHIUM CARBONATE
     Indication: PRODUCT USED FOR UNKNOWN INDICATION
     Dosage: 1 DOSAGE FORM, QD
     Route: 065
     Dates: start: 20170223, end: 20190815
  5. SALBUTAMOL [Concomitant]
     Active Substance: ALBUTEROL
     Indication: PRODUCT USED FOR UNKNOWN INDICATION
     Dosage: UNK, PRN
     Route: 065
     Dates: start: 20190812, end: 20190813
  6. ONDANSETRON [Concomitant]
     Active Substance: ONDANSETRON
     Dosage: 3 DOSAGE FORM, QD (1 DF, TID)
     Route: 065
     Dates: start: 20190812
  7. VENLAFAXINE [Suspect]
     Active Substance: VENLAFAXINE HYDROCHLORIDE
     Indication: PRODUCT USED FOR UNKNOWN INDICATION
     Dosage: 37.5 MILLIGRAM
     Route: 065
     Dates: start: 20170115
  8. DIAZEPAM. [Concomitant]
     Active Substance: DIAZEPAM
     Indication: PRODUCT USED FOR UNKNOWN INDICATION
     Dosage: 1 DOSAGE FORM, PRN
     Route: 065
     Dates: start: 20170523
  9. FLUOXETINE [Concomitant]
     Active Substance: FLUOXETINE HYDROCHLORIDE
     Indication: PRODUCT USED FOR UNKNOWN INDICATION
     Dosage: 1 DOSAGE FORM, PM
     Route: 065
     Dates: start: 20190812, end: 20190813
  10. PARACETAMOL [Concomitant]
     Active Substance: ACETAMINOPHEN
     Indication: PRODUCT USED FOR UNKNOWN INDICATION
     Dosage: EVERY 4-6 HOURS UP TO FOUR TIME
     Route: 065
     Dates: start: 20190812, end: 20190813
  11. LEVOMEPROMAZINE [Concomitant]
     Active Substance: LEVOMEPROMAZINE
     Indication: PRODUCT USED FOR UNKNOWN INDICATION
     Dosage: 1 DOSAGE FORM, QD (AT NIGHT)
     Route: 065
     Dates: start: 20190909
  12. FLUOXETINE [Concomitant]
     Active Substance: FLUOXETINE HYDROCHLORIDE
     Dosage: 1 DOSAGE FORM, QD (IN THE MORNING)
     Route: 065
     Dates: start: 20190812, end: 20190813
  13. BISOPROLOL [Concomitant]
     Active Substance: BISOPROLOL
     Indication: PRODUCT USED FOR UNKNOWN INDICATION
     Dosage: 1 DOSAGE FORM, QD (1 DF, QD)
     Route: 065
     Dates: start: 20190812, end: 20190813
  14. ONDANSETRON [Concomitant]
     Active Substance: ONDANSETRON
     Indication: PRODUCT USED FOR UNKNOWN INDICATION
     Dosage: 1 DOSAGE FORM, TID (THREE TIMES A DAY)
     Route: 065
     Dates: start: 20190812, end: 20190813

REACTIONS (2)
  - Acute psychosis [Recovering/Resolving]
  - Mania [Unknown]

NARRATIVE: CASE EVENT DATE: 20190913
